FAERS Safety Report 20771751 (Version 1)
Quarter: 2022Q2

REPORT INFORMATION
  Report Type: Spontaneous
  Country: FR (occurrence: FR)
  Receive Date: 20220430
  Receipt Date: 20220430
  Transmission Date: 20220721
  Serious: Yes (Hospitalization)
  Sender: FDA-Public Use
  Company Number: None

PATIENT
  Age: 84 Year
  Sex: Male
  Weight: 82 kg

DRUGS (12)
  1. DAPTOMYCIN [Suspect]
     Active Substance: DAPTOMYCIN
     Indication: Osteomyelitis
     Route: 042
     Dates: start: 20201101, end: 20201127
  2. CLINDAMYCIN [Suspect]
     Active Substance: CLINDAMYCIN
     Indication: Osteomyelitis
     Route: 048
     Dates: start: 20201101, end: 20201127
  3. SPIRIVA [Concomitant]
     Active Substance: TIOTROPIUM BROMIDE MONOHYDRATE
  4. FUROSEMIDE [Concomitant]
     Active Substance: FUROSEMIDE
  5. DULOXETINE [Concomitant]
     Active Substance: DULOXETINE
  6. PERINDOPRIL [Concomitant]
     Active Substance: PERINDOPRIL
  7. FINASTERIDE [Concomitant]
     Active Substance: FINASTERIDE
  8. APIXABAN [Concomitant]
     Active Substance: APIXABAN
  9. AMLODIPINE BESYLATE [Concomitant]
     Active Substance: AMLODIPINE BESYLATE
  10. ACETAMINOPHEN [Concomitant]
     Active Substance: ACETAMINOPHEN
  11. QUESTRAN [Concomitant]
     Active Substance: CHOLESTYRAMINE
  12. ATENOLOL [Concomitant]
     Active Substance: ATENOLOL

REACTIONS (3)
  - Acute kidney injury [Recovered/Resolved]
  - Rash erythematous [Recovered/Resolved]
  - Off label use [Unknown]

NARRATIVE: CASE EVENT DATE: 20201127
